FAERS Safety Report 10978292 (Version 1)
Quarter: 2015Q2

REPORT INFORMATION
  Report Type: Report from Study
  Country: US (occurrence: US)
  Receive Date: 20150402
  Receipt Date: 20150402
  Transmission Date: 20150821
  Serious: Yes (Hospitalization, Other)
  Sender: FDA-Public Use
  Company Number: US-SA-2015SA039293

PATIENT
  Age: 66 Year
  Sex: Male

DRUGS (35)
  1. DIURETICS [Suspect]
     Active Substance: UNSPECIFIED INGREDIENT
     Route: 065
  2. NIACIN. [Concomitant]
     Active Substance: NIACIN
  3. DOCUSATE SODIUM. [Concomitant]
     Active Substance: DOCUSATE SODIUM
     Indication: CONSTIPATION
  4. SYNTHROID [Concomitant]
     Active Substance: LEVOTHYROXINE SODIUM
     Indication: HYPOTHYROIDISM
  5. ULORIC [Concomitant]
     Active Substance: FEBUXOSTAT
  6. DAIVOBET [Concomitant]
     Active Substance: BETAMETHASONE DIPROPIONATE\CALCIPOTRIENE
     Indication: PSORIASIS
  7. LANTUS [Concomitant]
     Active Substance: INSULIN GLARGINE
     Indication: DIABETES MELLITUS
     Dosage: EVERY MORNING DOSE:65 UNIT(S)
  8. NITROGLYCERINE [Concomitant]
     Active Substance: NITROGLYCERIN
     Indication: CHEST PAIN
  9. HYDROCORTISONE. [Concomitant]
     Active Substance: HYDROCORTISONE
     Indication: PSORIASIS
  10. POTASSIUM [Concomitant]
     Active Substance: POTASSIUM
     Indication: PSORIASIS
  11. FUROSEMIDE. [Suspect]
     Active Substance: FUROSEMIDE
     Indication: OEDEMA
     Dosage: DOSE AND FREQUENCY: 80 MG ( 40 MG 1 IN 2 DAYS)
     Route: 065
     Dates: start: 201411
  12. CYCLOBENZAPRINE [Concomitant]
     Active Substance: CYCLOBENZAPRINE
     Indication: BACK PAIN
  13. LANSOPRAZOLE. [Concomitant]
     Active Substance: LANSOPRAZOLE
     Indication: GASTROOESOPHAGEAL REFLUX DISEASE
  14. BUPIVACAINE [Suspect]
     Active Substance: BUPIVACAINE
     Indication: BACK PAIN
     Dosage: FORM: INTRATHECAL PAIN PUMP,ROUTE: INFUSION
  15. HUMIRA [Suspect]
     Active Substance: ADALIMUMAB
     Indication: PSORIASIS
     Dosage: FORM: SOLUTION FOR INJECTION IN PRE-FILLED SYRINGES,FREQUENCY: 1 IN 2 WEEKS?STRENGTH: 40 MG
     Route: 058
     Dates: start: 20140926, end: 201410
  16. ASPIRIN. [Concomitant]
     Active Substance: ASPIRIN
  17. INSULIN [Concomitant]
     Active Substance: INSULIN NOS
  18. TESTOSTERONE. [Concomitant]
     Active Substance: TESTOSTERONE
     Indication: BLOOD TESTOSTERONE DECREASED
     Dates: start: 20141006, end: 20141006
  19. TAMSULOSIN [Concomitant]
     Active Substance: TAMSULOSIN
     Indication: BENIGN PROSTATIC HYPERPLASIA
  20. VITAMIN B1 [Concomitant]
     Active Substance: THIAMINE HYDROCHLORIDE
     Indication: VITAMIN SUPPLEMENTATION
  21. CLOBETASOL [Concomitant]
     Active Substance: CLOBETASOL
     Indication: PSORIASIS
  22. FUROSEMIDE. [Suspect]
     Active Substance: FUROSEMIDE
     Indication: OEDEMA
     Route: 065
     Dates: end: 201411
  23. PLAVIX [Concomitant]
     Active Substance: CLOPIDOGREL BISULFATE
     Indication: CORONARY ARTERIAL STENT INSERTION
  24. MIRAPEX [Concomitant]
     Active Substance: PRAMIPEXOLE DIHYDROCHLORIDE
  25. LASIX [Suspect]
     Active Substance: FUROSEMIDE
     Route: 065
  26. TYLENOL [Suspect]
     Active Substance: ACETAMINOPHEN
     Indication: BACK PAIN
     Route: 065
     Dates: start: 20141027
  27. FENTANYL. [Suspect]
     Active Substance: FENTANYL
     Indication: BACK PAIN
     Dosage: INTRATHECAL PAIN PUMP 1000MCG
  28. ATORVASTATIN [Concomitant]
     Active Substance: ATORVASTATIN
     Dosage: EVERY NIGHT
  29. BUSPIRONE [Concomitant]
     Active Substance: BUSPIRONE HYDROCHLORIDE
     Indication: PANIC ATTACK
  30. MIRALAX [Concomitant]
     Active Substance: POLYETHYLENE GLYCOL 3350
     Indication: CONSTIPATION
  31. NORTRIPTYLINE [Concomitant]
     Active Substance: NORTRIPTYLINE
     Indication: DEPRESSION
  32. RANEXA [Concomitant]
     Active Substance: RANOLAZINE
     Indication: ANGINA PECTORIS
  33. HUMIRA [Suspect]
     Active Substance: ADALIMUMAB
     Indication: PSORIASIS
     Dosage: FORM: SOLUTION FOR INJECTION IN PRE-FILLED SYRINGES,FREQUENCY; 1 IN 2 WEEKS
     Route: 058
     Dates: start: 20141003
  34. NOVOLOG [Concomitant]
     Active Substance: INSULIN ASPART
  35. TESTOSTERONE. [Concomitant]
     Active Substance: TESTOSTERONE
     Indication: BLOOD TESTOSTERONE DECREASED
     Dosage: INJECTABLE PELLET
     Dates: start: 201407, end: 201407

REACTIONS (23)
  - Fall [Unknown]
  - Contusion [Unknown]
  - Haemorrhage [Recovered/Resolved]
  - Haematoma [Recovered/Resolved]
  - Device issue [Unknown]
  - Asthenia [Recovered/Resolved]
  - Ventricular extrasystoles [Unknown]
  - Scratch [Recovered/Resolved]
  - Dehydration [Recovered/Resolved]
  - Fluid retention [Recovered/Resolved]
  - Muscle spasms [Recovered/Resolved]
  - Joint injury [Unknown]
  - Increased tendency to bruise [Recovered/Resolved]
  - Weight decreased [Recovered/Resolved]
  - Fatigue [Recovered/Resolved]
  - Dizziness [Recovered/Resolved]
  - Tachyarrhythmia [Unknown]
  - Arthralgia [Recovered/Resolved]
  - Hypotension [Recovered/Resolved]
  - Drug dose omission [Unknown]
  - Loss of consciousness [Recovered/Resolved]
  - Joint swelling [Recovered/Resolved]
  - Hypokalaemia [Recovered/Resolved]

NARRATIVE: CASE EVENT DATE: 2014
